FAERS Safety Report 10272704 (Version 1)
Quarter: 2014Q2

REPORT INFORMATION
  Report Type: Spontaneous
  Country: US (occurrence: None)
  Receive Date: 20140627
  Receipt Date: 20140627
  Transmission Date: 20141212
  Serious: Yes (Hospitalization)
  Sender: FDA-Public Use
  Company Number: None

PATIENT
  Age: 50 Year
  Sex: Female

DRUGS (3)
  1. RIBAVARIN [Suspect]
     Indication: HEPATITIS C
     Dosage: 200MG/400MG, ALTERNATE DAYS, ORAL
     Route: 048
  2. OLYSIO [Concomitant]
  3. SOLVALDI [Concomitant]

REACTIONS (1)
  - White blood cell count decreased [None]
